FAERS Safety Report 6011521-2 (Version None)
Quarter: 2008Q4

REPORT INFORMATION
  Report Type: 
  Country: None (occurrence: None)
  Receive Date: 20081218
  Receipt Date: 20080903
  Transmission Date: 20090506
  Serious: No
  Sender: FDA-Public Use
  Company Number: US-ASTRAZENECA-2008UW18078

PATIENT
  Age: 61 Year
  Sex: Female

DRUGS (4)
  1. CRESTOR [Suspect]
     Indication: HYPERCHOLESTEROLAEMIA
     Route: 048
     Dates: start: 20080820
  2. MICARDIS [Concomitant]
  3. TENORMIN [Concomitant]
  4. EFFEXOR [Concomitant]

REACTIONS (1)
  - ALOPECIA [None]
